FAERS Safety Report 13149186 (Version 1)
Quarter: 2017Q1

REPORT INFORMATION
  Report Type: Spontaneous
  Country: DE (occurrence: DE)
  Receive Date: 20170125
  Receipt Date: 20170125
  Transmission Date: 20170428
  Serious: Yes (Other)
  Sender: FDA-Public Use
  Company Number: DE-009507513-1701DEU007769

PATIENT
  Age: 35 Year
  Sex: Female

DRUGS (2)
  1. NUVARING [Suspect]
     Active Substance: ETHINYL ESTRADIOL\ETONOGESTREL
     Indication: CONTRACEPTION
     Dosage: 1 DF, UNK
     Route: 067
     Dates: start: 201611
  2. NUVARING [Suspect]
     Active Substance: ETHINYL ESTRADIOL\ETONOGESTREL
     Dosage: 1 DF, UNK
     Route: 067
     Dates: start: 20170104

REACTIONS (6)
  - Withdrawal bleed [Recovered/Resolved]
  - Inappropriate schedule of drug administration [Unknown]
  - Accidental underdose [Unknown]
  - Antidepressant therapy [Unknown]
  - Libido decreased [Not Recovered/Not Resolved]
  - Device expulsion [Recovered/Resolved]

NARRATIVE: CASE EVENT DATE: 2016
